FAERS Safety Report 4390326-2 (Version None)
Quarter: 2004Q2

REPORT INFORMATION
  Report Type: 
  Country: None (occurrence: None)
  Receive Date: 20040630
  Receipt Date: 20040625
  Transmission Date: 20050107
  Serious: Yes (Life-Threatening)
  Sender: FDA-Public Use
  Company Number: TCI2004A02450

PATIENT
  Age: 48 Year
  Sex: Male

DRUGS (13)
  1. TAKEPRON (LANSOPRAZOLE) (PREPARATION) FOR ORAL USE  (NOS) PRIOR USE OF [Suspect]
     Indication: GASTRIC ULCER HAEMORRHAGE
     Dosage: SEE IMAGE
     Route: 048
     Dates: start: 20040517, end: 20040517
  2. TAKEPRON (LANSOPRAZOLE) (PREPARATION) FOR ORAL USE  (NOS) PRIOR USE OF [Suspect]
     Indication: HELICOBACTER INFECTION
     Dosage: SEE IMAGE
     Route: 048
     Dates: start: 20040517, end: 20040517
  3. TAKEPRON (LANSOPRAZOLE) (PREPARATION) FOR ORAL USE  (NOS) PRIOR USE OF [Suspect]
     Indication: GASTRIC ULCER HAEMORRHAGE
     Dosage: SEE IMAGE
     Route: 048
     Dates: start: 20040518, end: 20040518
  4. TAKEPRON (LANSOPRAZOLE) (PREPARATION) FOR ORAL USE  (NOS) PRIOR USE OF [Suspect]
     Indication: HELICOBACTER INFECTION
     Dosage: SEE IMAGE
     Route: 048
     Dates: start: 20040518, end: 20040518
  5. TAKEPRON (LANSOPRAZOLE) (PREPARATION) FOR ORAL USE  (NOS) PRIOR USE OF [Suspect]
     Indication: GASTRIC ULCER HAEMORRHAGE
     Dosage: SEE IMAGE
     Route: 048
     Dates: start: 20040519, end: 20040519
  6. TAKEPRON (LANSOPRAZOLE) (PREPARATION) FOR ORAL USE  (NOS) PRIOR USE OF [Suspect]
     Indication: HELICOBACTER INFECTION
     Dosage: SEE IMAGE
     Route: 048
     Dates: start: 20040519, end: 20040519
  7. AMOXICILLIN TRIHYDRATE [Suspect]
     Indication: HELICOBACTER INFECTION
     Dosage: SEE IMAGE
     Route: 048
     Dates: start: 20040517, end: 20040517
  8. AMOXICILLIN TRIHYDRATE [Suspect]
     Indication: HELICOBACTER INFECTION
     Dosage: SEE IMAGE
     Route: 048
     Dates: start: 20040518, end: 20040518
  9. AMOXICILLIN TRIHYDRATE [Suspect]
     Indication: HELICOBACTER INFECTION
     Dosage: SEE IMAGE
     Route: 048
     Dates: start: 20040519, end: 20040519
  10. CLARITHROMYCIN [Suspect]
     Indication: HELICOBACTER INFECTION
     Dosage: SEE IMAGE
     Route: 048
     Dates: start: 20040517, end: 20040517
  11. CLARITHROMYCIN [Suspect]
     Indication: HELICOBACTER INFECTION
     Dosage: SEE IMAGE
     Route: 048
     Dates: start: 20040518, end: 20040518
  12. CLARITHROMYCIN [Suspect]
     Indication: HELICOBACTER INFECTION
     Dosage: SEE IMAGE
     Route: 048
     Dates: start: 20040519, end: 20040519
  13. POMAC (POLAPREZINC) (GRANULATE) [Concomitant]

REACTIONS (16)
  - ALPHA-1 ANTI-TRYPSIN INCREASED [None]
  - BLOOD ALBUMIN DECREASED [None]
  - BLOOD IMMUNOGLOBULIN G DECREASED [None]
  - BLOOD PRESSURE DECREASED [None]
  - BONE MARROW DEPRESSION [None]
  - DISSEMINATED INTRAVASCULAR COAGULATION [None]
  - DRUG HYPERSENSITIVITY [None]
  - HEPATITIS ACUTE [None]
  - INFLAMMATION [None]
  - MARROW HYPERPLASIA [None]
  - MULTI-ORGAN FAILURE [None]
  - NEPHROLITHIASIS [None]
  - PYREXIA [None]
  - RENAL IMPAIRMENT [None]
  - SHOCK [None]
  - WHITE BLOOD CELL COUNT DECREASED [None]
